FAERS Safety Report 9596283 (Version 1)
Quarter: 2013Q4

REPORT INFORMATION
  Report Type: Spontaneous
  Country: DE (occurrence: DE)
  Receive Date: 20131004
  Receipt Date: 20131004
  Transmission Date: 20140711
  Serious: Yes (Death)
  Sender: FDA-Public Use
  Company Number: DE-TEVA-435472GER

PATIENT
  Age: 84 Year
  Sex: Female
  Weight: 62 kg

DRUGS (12)
  1. CO-TRIMOXAZOLE [Suspect]
     Indication: OROPHARYNGEAL PAIN
     Dates: start: 20130830, end: 20130908
  2. METAMIZOL [Suspect]
     Indication: OROPHARYNGEAL PAIN
     Dosage: 90 GTT DAILY;
     Route: 048
     Dates: start: 20130829, end: 20130909
  3. DIHYDROCODEIN [Concomitant]
     Dosage: 60 GTT DAILY;
     Route: 048
     Dates: start: 20130829, end: 20130909
  4. CHOLECALCIFEROL [Concomitant]
     Dosage: 1000 IU (INTERNATIONAL UNIT) DAILY;
     Route: 048
     Dates: end: 20130909
  5. PANTOPRAZOL [Concomitant]
     Indication: GASTRITIS PROPHYLAXIS
     Dosage: 40 MILLIGRAM DAILY;
     Route: 048
     Dates: end: 20130909
  6. LEVOTHYROXIN [Concomitant]
     Indication: THYROIDECTOMY
     Dosage: 50 MICROGRAM DAILY;
     Route: 048
     Dates: end: 20130909
  7. CALCIUM SANDOZ BT [Concomitant]
     Dosage: 1000 MILLIGRAM DAILY;
     Route: 048
     Dates: end: 20130909
  8. ACC [Concomitant]
     Dosage: 1200 MILLIGRAM DAILY;
     Route: 048
     Dates: start: 20130829, end: 20130909
  9. THYMIANKRAUT / PRIMELWURZEL [Concomitant]
     Dosage: 90 GTT DAILY;
     Dates: start: 20130829, end: 20130909
  10. ASS 100 [Concomitant]
     Indication: TRANSIENT ISCHAEMIC ATTACK
     Dosage: 100 MILLIGRAM DAILY;
     Route: 048
     Dates: end: 20130909
  11. METHOTREXAT [Concomitant]
     Indication: POLYMYALGIA RHEUMATICA
     Route: 048
     Dates: end: 20130829
  12. IBUPROFEN [Concomitant]
     Indication: PITUITARY TUMOUR BENIGN
     Route: 048
     Dates: start: 20130814, end: 20130829

REACTIONS (4)
  - Drug eruption [Fatal]
  - Pancytopenia [Fatal]
  - Pulmonary sepsis [Fatal]
  - Neutropenic colitis [Fatal]
